FAERS Safety Report 19648503 (Version 1)
Quarter: 2021Q3

REPORT INFORMATION
  Report Type: Spontaneous
  Country: US (occurrence: US)
  Receive Date: 20210803
  Receipt Date: 20210803
  Transmission Date: 20211014
  Serious: No
  Sender: FDA-Public Use
  Company Number: US-ORGANON-O2107USA002172

PATIENT
  Age: 26 Year
  Sex: Female
  Weight: 61.23 kg

DRUGS (1)
  1. NEXPLANON [Suspect]
     Active Substance: ETONOGESTREL
     Dosage: 1 ROD, ONCE (DOSE WAS REPORTED AS 68 MG)
     Route: 059
     Dates: start: 202102

REACTIONS (4)
  - Implant site hypoaesthesia [Unknown]
  - Implant site pain [Unknown]
  - Implant site paraesthesia [Unknown]
  - Device placement issue [Unknown]

NARRATIVE: CASE EVENT DATE: 202102
